FAERS Safety Report 7039761-4 (Version None)
Quarter: 2010Q4

REPORT INFORMATION
  Report Type: 
  Country: None (occurrence: None)
  Receive Date: 20101012
  Receipt Date: 20100218
  Transmission Date: 20110411
  Serious: No
  Sender: FDA-Public Use
  Company Number: US-MYLANLABS-2010S1000210

PATIENT
  Age: 77 Year
  Sex: Female

DRUGS (1)
  1. PINDOLOL [Suspect]
     Indication: HEART RATE IRREGULAR
     Route: 048
     Dates: start: 20091117, end: 20091211

REACTIONS (6)
  - ASTHENIA [None]
  - DRUG INTOLERANCE [None]
  - DYSPNOEA [None]
  - FATIGUE [None]
  - PAIN [None]
  - SELF ESTEEM DECREASED [None]
